FAERS Safety Report 8934012 (Version 1)
Quarter: 2012Q4

REPORT INFORMATION
  Report Type: 
  Country: GE (occurrence: GE)
  Receive Date: 20121129
  Receipt Date: 20121129
  Transmission Date: 20130627
  Serious: Yes (Hospitalization)
  Sender: FDA-Public Use
  Company Number: GE-ROCHE-1161490

PATIENT
  Sex: Male

DRUGS (2)
  1. ROACTEMRA [Suspect]
     Indication: RHEUMATOID ARTHRITIS
     Route: 050
     Dates: start: 201111
  2. ROACTEMRA [Suspect]
     Route: 050

REACTIONS (2)
  - Cellulitis [Unknown]
  - Pneumonitis [Recovered/Resolved]
